FAERS Safety Report 15013192 (Version 1)
Quarter: 2018Q2

REPORT INFORMATION
  Report Type: Spontaneous
  Country: BR (occurrence: BR)
  Receive Date: 20180614
  Receipt Date: 20180614
  Transmission Date: 20180711
  Serious: Yes (Hospitalization)
  Sender: FDA-Public Use
  Company Number: BR-B.I. PHARMACEUTICALS,INC./RIDGEFIELD-2018-BI-030422

PATIENT
  Age: 45 Year
  Sex: Female
  Weight: 115 kg

DRUGS (4)
  1. DIAZEPAM. [Concomitant]
     Active Substance: DIAZEPAM
     Indication: NERVOUS SYSTEM DISORDER
     Route: 048
  2. ATENSINA [Suspect]
     Active Substance: CLONIDINE
     Indication: HYPERTENSION
     Route: 048
     Dates: end: 201804
  3. LOSARTANA [Concomitant]
     Active Substance: LOSARTAN
     Indication: HYPERTENSION
     Route: 048
     Dates: start: 2014
  4. NIFEDIPINO [Concomitant]
     Indication: HYPERTENSION
     Route: 048

REACTIONS (6)
  - Drug administered to patient of inappropriate age [Recovered/Resolved]
  - Uterine leiomyoma [Recovered/Resolved]
  - Uterine neoplasm [Recovered/Resolved]
  - Feeding disorder [Not Recovered/Not Resolved]
  - Blood pressure increased [Not Recovered/Not Resolved]
  - Overdose [Not Recovered/Not Resolved]

NARRATIVE: CASE EVENT DATE: 201804
